FAERS Safety Report 19274382 (Version 4)
Quarter: 2021Q2

REPORT INFORMATION
  Report Type: Report from Study
  Country: US (occurrence: US)
  Receive Date: 20210519
  Receipt Date: 20210611
  Transmission Date: 20210717
  Serious: Yes (Other)
  Sender: FDA-Public Use
  Company Number: US-GLAXOSMITHKLINE-US2021103210

PATIENT
  Sex: Female

DRUGS (2)
  1. NIRAPARIB [Suspect]
     Active Substance: NIRAPARIB
     Dosage: 200 MG, QD
     Route: 048
     Dates: start: 20210515
  2. NIRAPARIB [Suspect]
     Active Substance: NIRAPARIB
     Indication: ENDOMETRIAL CANCER
     Dosage: 100 MG, QD
     Route: 048
     Dates: start: 20210507

REACTIONS (8)
  - Constipation [Recovering/Resolving]
  - Weight increased [Not Recovered/Not Resolved]
  - Off label use [Unknown]
  - Platelet count decreased [Not Recovered/Not Resolved]
  - Product use in unapproved indication [Unknown]
  - Hypersomnia [Recovered/Resolved]
  - Neuropathy peripheral [Not Recovered/Not Resolved]
  - Diarrhoea [Recovered/Resolved]
